FAERS Safety Report 7421868-0 (Version None)
Quarter: 2011Q2

REPORT INFORMATION
  Report Type: 
  Country: None (occurrence: None)
  Receive Date: 20110418
  Receipt Date: 20110412
  Transmission Date: 20111010
  Serious: Yes (Death)
  Sender: FDA-Public Use
  Company Number: CO-PFIZER INC-2011080859

PATIENT
  Age: 74 Year
  Sex: Male

DRUGS (3)
  1. OLMETEC [Suspect]
     Indication: HYPERTENSION
     Dosage: OLMESARTAN MEDOXOMIL 20 MG, HYDROCHLOROTHIAZIDE 12.5 MG
     Dates: start: 20080101
  2. LIPITOR [Suspect]
     Indication: DYSLIPIDAEMIA
     Dosage: 10 MG, 1X/DAY
     Dates: start: 20080101
  3. NORVASC [Suspect]
     Dosage: 5 MG, 1X/DAY

REACTIONS (1)
  - DEATH [None]
